FAERS Safety Report 19890286 (Version 1)
Quarter: 2021Q3

REPORT INFORMATION
  Report Type: Spontaneous
  Country: US (occurrence: US)
  Receive Date: 20210928
  Receipt Date: 20210928
  Transmission Date: 20211014
  Serious: Yes (Other)
  Sender: FDA-Public Use
  Company Number: None

PATIENT
  Age: 81 Year
  Sex: Female
  Weight: 70.29 kg

DRUGS (11)
  1. TAMOXIFEN [Suspect]
     Active Substance: TAMOXIFEN
     Indication: BREAST CANCER
     Route: 048
     Dates: start: 20210611
  2. DOXYCYCLINE. [Concomitant]
     Active Substance: DOXYCYCLINE
  3. AMLODIPINE BENAZEPRIL [Concomitant]
     Active Substance: AMLODIPINE BESYLATE\BENAZEPRIL HYDROCHLORIDE
  4. IBUPROFEN. [Concomitant]
     Active Substance: IBUPROFEN
  5. PIQRAY [Suspect]
     Active Substance: ALPELISIB
     Indication: BREAST CANCER
     Route: 048
     Dates: start: 20210611
  6. PREDNISONE. [Concomitant]
     Active Substance: PREDNISONE
  7. TRAMADOL. [Concomitant]
     Active Substance: TRAMADOL
  8. CALCIUM CARBONATE. [Concomitant]
     Active Substance: CALCIUM CARBONATE
  9. EZETIMIBE. [Concomitant]
     Active Substance: EZETIMIBE
  10. OXYCODONE [Concomitant]
     Active Substance: OXYCODONE
  11. ASPIRIN. [Concomitant]
     Active Substance: ASPIRIN

REACTIONS (3)
  - Taste disorder [None]
  - Dry skin [None]
  - Pruritus [None]

NARRATIVE: CASE EVENT DATE: 20210928
